FAERS Safety Report 6638189-6 (Version None)
Quarter: 2010Q1

REPORT INFORMATION
  Report Type: 
  Country: None (occurrence: None)
  Receive Date: 20100301
  Receipt Date: 20090119
  Transmission Date: 20100710
  Serious: Yes (Other)
  Sender: FDA-Public Use
  Company Number: ALA_00233_2009

PATIENT
  Sex: Female

DRUGS (4)
  1. REGLAN [Suspect]
     Indication: GASTROOESOPHAGEAL REFLUX DISEASE
     Dosage: DF ORAL
     Route: 048
     Dates: start: 19790101, end: 19790101
  2. AMITRIPTYLINE [Concomitant]
  3. NAVANE [Concomitant]
  4. INDERAL [Concomitant]

REACTIONS (2)
  - AKATHISIA [None]
  - COGWHEEL RIGIDITY [None]
